FAERS Safety Report 19915943 (Version 1)
Quarter: 2021Q4

REPORT INFORMATION
  Report Type: Report from Study
  Country: CA (occurrence: CA)
  Receive Date: 20211005
  Receipt Date: 20211005
  Transmission Date: 20220303
  Serious: Yes (Death, Hospitalization, Other)
  Sender: FDA-Public Use
  Company Number: CA-BEH-2021129425

PATIENT
  Age: 55 Year
  Sex: Male
  Weight: 60 kg

DRUGS (4)
  1. HIZENTRA [Suspect]
     Active Substance: HUMAN IMMUNOGLOBULIN G
     Indication: Chronic inflammatory demyelinating polyradiculoneuropathy
     Dosage: 40 GRAM, QW, 2 TIMES A WEEK
     Route: 058
     Dates: start: 20210302
  2. HIZENTRA [Suspect]
     Active Substance: HUMAN IMMUNOGLOBULIN G
     Dosage: 50 GRAM, QW. OTHER INSTRUCTIONS: 20 GX1, 30GX1 WEEK
     Route: 058
     Dates: start: 20210302
  3. HIZENTRA [Suspect]
     Active Substance: HUMAN IMMUNOGLOBULIN G
     Dosage: UNK
     Route: 058
     Dates: start: 20210319
  4. HIZENTRA [Suspect]
     Active Substance: HUMAN IMMUNOGLOBULIN G
     Dosage: 40 MILLIGRAM
     Route: 058
     Dates: start: 20210305

REACTIONS (12)
  - Gait disturbance [Unknown]
  - Coordination abnormal [Unknown]
  - Condition aggravated [Unknown]
  - Sensory loss [Unknown]
  - Infusion site induration [Unknown]
  - Fine motor skill dysfunction [Unknown]
  - Coordination abnormal [Unknown]
  - Asthenia [Unknown]
  - Intentional dose omission [Unknown]
  - Intentional dose omission [Unknown]
  - Chronic inflammatory demyelinating polyradiculoneuropathy [Fatal]
  - Drug ineffective [Fatal]

NARRATIVE: CASE EVENT DATE: 20210301
